FAERS Safety Report 7521730-9 (Version None)
Quarter: 2011Q2

REPORT INFORMATION
  Report Type: 
  Country: None (occurrence: None)
  Receive Date: 20110603
  Receipt Date: 20110525
  Transmission Date: 20111010
  Serious: Yes (Hospitalization)
  Sender: FDA-Public Use
  Company Number: US-JNJFOC-20110512288

PATIENT
  Sex: Female
  Weight: 44.45 kg

DRUGS (6)
  1. KLONOPIN [Concomitant]
     Indication: POST-TRAUMATIC STRESS DISORDER
     Route: 048
  2. FENTANYL-100 [Suspect]
     Indication: HEADACHE
     Dosage: NDC: 0781-7244-55
     Route: 062
     Dates: start: 20110101
  3. ADDERALL 10 [Concomitant]
     Indication: POST-TRAUMATIC STRESS DISORDER
     Dosage: LATER IN THE DAY
     Route: 048
  4. DURAGESIC-100 [Suspect]
     Indication: HEADACHE
     Route: 062
     Dates: end: 20110101
  5. ADDERALL 10 [Concomitant]
     Dosage: IN MORNING
     Route: 048
     Dates: start: 20090101
  6. NORCO [Concomitant]
     Indication: BREAKTHROUGH PAIN
     Dosage: 10/325 AS NEEDED
     Route: 048

REACTIONS (3)
  - SPINAL CORD NEOPLASM [None]
  - WRONG TECHNIQUE IN DRUG USAGE PROCESS [None]
  - PRODUCT PHYSICAL ISSUE [None]
